FAERS Safety Report 22616649 (Version 4)
Quarter: 2024Q1

REPORT INFORMATION
  Report Type: Spontaneous
  Country: US (occurrence: US)
  Receive Date: 20230619
  Receipt Date: 20240112
  Transmission Date: 20240410
  Serious: Yes (Other)
  Sender: FDA-Public Use
  Company Number: US-BAYER-2023A084407

PATIENT
  Age: 62 Year
  Sex: Female

DRUGS (6)
  1. KOVALTRY [Suspect]
     Active Substance: ANTIHEMOPHILIC FACTOR, HUMAN RECOMBINANT
     Indication: Factor VIII deficiency
     Dosage: 1500 UNITS  (+/-10%) BREAKTHRU BLEEDING, PRIOR TO INVASIVE  PROCEDURES)
     Route: 042
  2. KOVALTRY [Suspect]
     Active Substance: ANTIHEMOPHILIC FACTOR, HUMAN RECOMBINANT
     Indication: Haemophilia carrier
     Dosage: 1500 UNITS  (+/-10%) BREAKTHRU BLEEDING, PRIOR TO INVASIVE  PROCEDURES)
     Route: 042
  3. KOVALTRY [Suspect]
     Active Substance: ANTIHEMOPHILIC FACTOR, HUMAN RECOMBINANT
     Indication: Factor VIII deficiency
     Dosage: USED ALL 4 KOVALTRY DOSES
     Route: 042
  4. KOVALTRY [Suspect]
     Active Substance: ANTIHEMOPHILIC FACTOR, HUMAN RECOMBINANT
     Indication: Factor VIII deficiency
     Dosage: 2 KOVALTRY DOSES TO TREAT HAND BLEED
     Route: 042
  5. KOVALTRY [Suspect]
     Active Substance: ANTIHEMOPHILIC FACTOR, HUMAN RECOMBINANT
     Indication: Factor VIII deficiency
     Dosage: 1500 UNITS  (+/-10%) BREAKTHRU BLEEDING, PRIOR TO INVASIVE  PROCEDURES)
     Route: 042
  6. AZELASTINE HYDROCHLORIDE [Concomitant]
     Active Substance: AZELASTINE HYDROCHLORIDE
     Dosage: UNK

REACTIONS (5)
  - Haemorrhage [None]
  - Haemarthrosis [None]
  - Haemorrhage [None]
  - Haemorrhage [Recovered/Resolved]
  - Road traffic accident [None]

NARRATIVE: CASE EVENT DATE: 20230610
